FAERS Safety Report 24292894 (Version 1)
Quarter: 2024Q3

REPORT INFORMATION
  Report Type: Spontaneous
  Country: US (occurrence: None)
  Receive Date: 20240906
  Receipt Date: 20240906
  Transmission Date: 20241017
  Serious: No
  Sender: DOMPE FARMACEUTICI
  Company Number: US-FARMAPROD-202308-202311-3218

PATIENT
  Age: 69 Year
  Sex: Male

DRUGS (23)
  1. OXERVATE [Suspect]
     Active Substance: CENEGERMIN-BKBJ
     Indication: Neurotrophic keratopathy
     Route: 047
     Dates: start: 20230927
  2. VITAMIN D3 [Concomitant]
     Active Substance: CHOLECALCIFEROL
  3. DOCUSATE SODIUM [Concomitant]
     Active Substance: DOCUSATE SODIUM
  4. OMEPRAZOLE [Concomitant]
     Active Substance: OMEPRAZOLE
  5. DULCOLAX [Concomitant]
  6. ZYRTEC [Concomitant]
     Active Substance: CETIRIZINE HYDROCHLORIDE
  7. NITROGLYCERIN [Concomitant]
     Active Substance: NITROGLYCERIN
  8. VENTOLIN HFA [Concomitant]
     Active Substance: ALBUTEROL SULFATE
     Dosage: AEROSOL WITH ADAPTER
  9. MOXIFLOXACIN [Concomitant]
     Active Substance: MOXIFLOXACIN
  10. VALACYCLOVIR [Concomitant]
     Active Substance: VALACYCLOVIR HYDROCHLORIDE
  11. RANOLAZINE [Concomitant]
     Active Substance: RANOLAZINE
     Dosage: 12 HOURS.
  12. ASPIRIN [Concomitant]
     Active Substance: ASPIRIN
  13. VITAMIN B12 [Concomitant]
     Active Substance: CYANOCOBALAMIN
  14. CENTRUM SILVER MEN [Concomitant]
  15. PRAMIPEXOLE DIHYDROCHLORIDE [Concomitant]
     Active Substance: PRAMIPEXOLE DIHYDROCHLORIDE
  16. MAGNESIUM [Concomitant]
     Active Substance: MAGNESIUM
  17. LATANOPROST [Concomitant]
     Active Substance: LATANOPROST
  18. DORZOLAMIDE [Concomitant]
     Active Substance: DORZOLAMIDE
  19. ISOSORBIDE MONONITRATE [Concomitant]
     Active Substance: ISOSORBIDE MONONITRATE
     Dosage: EXTENDED RELEASE
  20. CLOPIDOGREL [Concomitant]
     Active Substance: CLOPIDOGREL BISULFATE
  21. LISINOPRIL [Concomitant]
     Active Substance: LISINOPRIL
  22. SIMVASTATIN [Concomitant]
     Active Substance: SIMVASTATIN
  23. DOXYCYCLINE [Concomitant]
     Active Substance: DOXYCYCLINE\DOXYCYCLINE HYCLATE

REACTIONS (2)
  - Eye pain [Recovered/Resolved]
  - Eyelid pain [Unknown]

NARRATIVE: CASE EVENT DATE: 20231029
